FAERS Safety Report 7495982-8 (Version None)
Quarter: 2011Q2

REPORT INFORMATION
  Report Type: 
  Country: None (occurrence: None)
  Receive Date: 20110523
  Receipt Date: 20110518
  Transmission Date: 20111010
  Serious: Yes (Hospitalization, Other)
  Sender: FDA-Public Use
  Company Number: FR-PFIZER INC-2011106214

PATIENT
  Age: 41 Year
  Sex: Male

DRUGS (1)
  1. XANAX [Suspect]
     Indication: SUICIDE ATTEMPT
     Dosage: 27 DF, SINGLE
     Route: 048
     Dates: start: 20110412, end: 20110412

REACTIONS (3)
  - SOMNOLENCE [None]
  - SUICIDE ATTEMPT [None]
  - SEXUAL DYSFUNCTION [None]
